FAERS Safety Report 5028895-1 (Version None)
Quarter: 2006Q2

REPORT INFORMATION
  Report Type: 
  Country: None (occurrence: None)
  Receive Date: 20060619
  Receipt Date: 20060510
  Transmission Date: 20061013
  Serious: Yes (Hospitalization, Other)
  Sender: FDA-Public Use
  Company Number: US-GLAXOSMITHKLINE-A0605070A

PATIENT
  Age: 50 Year
  Sex: Male

DRUGS (2)
  1. WELLBUTRIN XL [Suspect]
     Indication: DEPRESSION
     Dosage: 150MG PER DAY
     Route: 048
     Dates: end: 20060509
  2. LOTRISONE [Concomitant]
     Route: 061

REACTIONS (3)
  - DIVERTICULITIS [None]
  - INFLAMMATION [None]
  - MALABSORPTION [None]
